FAERS Safety Report 4882181-9 (Version None)
Quarter: 2006Q1

REPORT INFORMATION
  Report Type: 
  Country: None (occurrence: None)
  Receive Date: 20060117
  Receipt Date: 20051107
  Transmission Date: 20060701
  Serious: Yes (Death, Hospitalization)
  Sender: FDA-Public Use
  Company Number: US-MERCK-0511USA01141

PATIENT
  Age: 72 Year
  Sex: Female
  Weight: 73 kg

DRUGS (1)
  1. VIOXX [Suspect]
     Route: 048

REACTIONS (4)
  - CARDIOVASCULAR DISORDER [None]
  - CEREBROVASCULAR ACCIDENT [None]
  - DEATH [None]
  - ISCHAEMIC STROKE [None]
